FAERS Safety Report 9725233 (Version 1)
Quarter: 2013Q4

REPORT INFORMATION
  Report Type: Spontaneous
  Country: US (occurrence: None)
  Receive Date: 20131129
  Receipt Date: 20131129
  Transmission Date: 20140711
  Serious: Yes (Other)
  Sender: FDA-Public Use
  Company Number: SYM-2013-13295

PATIENT
  Age: 57 Year
  Sex: Male

DRUGS (3)
  1. FLUOROURACIL [Suspect]
     Indication: COLON CANCER
     Dates: start: 201204, end: 201209
  2. OXALIPLATIN [Suspect]
     Indication: COLON CANCER
     Dates: start: 201204, end: 201209
  3. LEUCOVORIN [Suspect]
     Indication: COLON CANCER
     Dates: start: 201204, end: 201209

REACTIONS (7)
  - Portal hypertension [None]
  - Intrahepatic portal hepatic venous fistula [None]
  - Abdominal pain [None]
  - Thrombocytopenia [None]
  - Hepatic steatosis [None]
  - Hepatic atrophy [None]
  - Varices oesophageal [None]
